FAERS Safety Report 9921098 (Version 2)
Quarter: 2014Q1

REPORT INFORMATION
  Report Type: Report from Study
  Country: BR (occurrence: BR)
  Receive Date: 20140225
  Receipt Date: 20140326
  Transmission Date: 20141002
  Serious: Yes (Death)
  Sender: FDA-Public Use
  Company Number: BR-ROCHE-1354890

PATIENT
  Sex: Female

DRUGS (3)
  1. XOLAIR [Suspect]
     Indication: ASTHMA
     Route: 065
  2. CIMZIA [Concomitant]
     Indication: DYSPNOEA
  3. FORASEQ [Concomitant]
     Indication: DYSPNOEA

REACTIONS (10)
  - Death [Fatal]
  - Immunodeficiency [Recovering/Resolving]
  - Influenza [Recovering/Resolving]
  - Nightmare [Recovered/Resolved]
  - Insomnia [Recovered/Resolved]
  - Bone pain [Recovering/Resolving]
  - Sluggishness [Recovering/Resolving]
  - Poor quality sleep [Recovering/Resolving]
  - Somnolence [Recovering/Resolving]
  - Agitation [Recovered/Resolved]
